FAERS Safety Report 9825682 (Version 1)
Quarter: 2014Q1

REPORT INFORMATION
  Report Type: Spontaneous
  Country: FR (occurrence: FR)
  Receive Date: 20140117
  Receipt Date: 20140117
  Transmission Date: 20141002
  Serious: Yes (Hospitalization, Other)
  Sender: FDA-Public Use
  Company Number: FR-ELI_LILLY_AND_COMPANY-FR201401001039

PATIENT
  Age: 0 Day
  Sex: 0

DRUGS (7)
  1. CYMBALTA [Suspect]
     Indication: DEPRESSION
     Dosage: 60 MG, QD
     Route: 064
     Dates: end: 201301
  2. CYMBALTA [Suspect]
     Dosage: 60 MG, QD
     Route: 064
     Dates: start: 2013, end: 20130904
  3. STILNOX [Suspect]
     Indication: DEPRESSION
     Dosage: UNK
     Route: 064
     Dates: end: 20130904
  4. NALBUPHINE [Suspect]
     Indication: MENTAL DISORDER
     Dosage: 20 MG, SINGLE
     Route: 064
     Dates: start: 20130904, end: 20130904
  5. INEXIUM [Concomitant]
     Indication: PRODUCT USED FOR UNKNOWN INDICATION
     Dosage: 40 MG, QD
     Route: 064
     Dates: start: 201304, end: 20130904
  6. PRIMPERAN [Concomitant]
     Indication: PRODUCT USED FOR UNKNOWN INDICATION
     Dosage: 10 MG, QD
     Route: 064
     Dates: start: 201302, end: 20130904
  7. TARDYFERON [Concomitant]
     Indication: PRODUCT USED FOR UNKNOWN INDICATION
     Dosage: 1 DF, QD
     Route: 064
     Dates: start: 201304

REACTIONS (9)
  - Hypotonia neonatal [Recovered/Resolved]
  - Arrhythmia neonatal [Unknown]
  - Electroencephalogram abnormal [Unknown]
  - Tremor [Recovered/Resolved]
  - Drug withdrawal syndrome neonatal [Recovered/Resolved]
  - Foetal growth restriction [Not Recovered/Not Resolved]
  - Neonatal respiratory distress syndrome [Recovered/Resolved]
  - Foetal exposure during pregnancy [Recovered/Resolved]
  - Premature baby [Unknown]
